FAERS Safety Report 6311673-0 (Version None)
Quarter: 2009Q3

REPORT INFORMATION
  Report Type: 
  Country: None (occurrence: None)
  Receive Date: 20090817
  Receipt Date: 20090807
  Transmission Date: 20100115
  Serious: Yes (Hospitalization)
  Sender: FDA-Public Use
  Company Number: US-ABBOTT-09P-163-0589946-00

PATIENT
  Sex: Female

DRUGS (11)
  1. HUMIRA [Suspect]
     Indication: CROHN'S DISEASE
     Route: 058
     Dates: start: 20081201
  2. AMLODIPINE [Concomitant]
     Indication: DRUG USE FOR UNKNOWN INDICATION
  3. COLESTID [Concomitant]
     Indication: DRUG USE FOR UNKNOWN INDICATION
  4. COLESTID [Concomitant]
  5. ASOCOL [Concomitant]
     Indication: DRUG USE FOR UNKNOWN INDICATION
  6. LYRICA [Concomitant]
     Indication: DRUG USE FOR UNKNOWN INDICATION
  7. CATAPRESS PATCH [Concomitant]
     Indication: DRUG USE FOR UNKNOWN INDICATION
  8. SPIRONOLACTONE [Concomitant]
     Indication: DRUG USE FOR UNKNOWN INDICATION
  9. FMARA [Concomitant]
     Indication: DRUG USE FOR UNKNOWN INDICATION
     Dosage: CANCER
  10. COUMADIN [Concomitant]
     Indication: DRUG USE FOR UNKNOWN INDICATION
  11. XANAX [Concomitant]
     Indication: DRUG USE FOR UNKNOWN INDICATION

REACTIONS (8)
  - DEEP VEIN THROMBOSIS [None]
  - DRY MOUTH [None]
  - FATIGUE [None]
  - HOSPITALISATION [None]
  - NASAL DRYNESS [None]
  - NEUROPATHY PERIPHERAL [None]
  - OEDEMA PERIPHERAL [None]
  - PULMONARY EMBOLISM [None]
